FAERS Safety Report 21810863 (Version 1)
Quarter: 2023Q1

REPORT INFORMATION
  Report Type: Spontaneous
  Country: FR (occurrence: FR)
  Receive Date: 20230103
  Receipt Date: 20230103
  Transmission Date: 20230418
  Serious: Yes (Other)
  Sender: FDA-Public Use
  Company Number: None

PATIENT
  Age: 23 Year
  Sex: Female
  Weight: 58 kg

DRUGS (1)
  1. YAZ [Suspect]
     Active Substance: DROSPIRENONE\ETHINYL ESTRADIOL
     Indication: Contraception
     Route: 048
     Dates: start: 20150301, end: 20220628

REACTIONS (2)
  - Sinus tachycardia [Recovered/Resolved]
  - Extrasystoles [Recovering/Resolving]

NARRATIVE: CASE EVENT DATE: 20160701
